FAERS Safety Report 6540477-9 (Version None)
Quarter: 2010Q1

REPORT INFORMATION
  Report Type: 
  Country: None (occurrence: None)
  Receive Date: 20100113
  Receipt Date: 20091228
  Transmission Date: 20100710
  Serious: Yes (Hospitalization, Other)
  Sender: FDA-Public Use
  Company Number: 2010-00020

PATIENT
  Age: 88 Year
  Sex: Female

DRUGS (9)
  1. VALPROIC ACID [Suspect]
     Indication: EPILEPSY
     Dosage: 300 MG, OD
  2. PHENOBARBITAL TAB [Concomitant]
  3. DIPYRIDAMOLE/SALICYLIC ACID 25/500 [Concomitant]
  4. OXAZEPAM [Concomitant]
  5. LOSARTAN POTASSIUM [Concomitant]
  6. LEVOTHYROXINE SODIUM [Concomitant]
  7. RABEPRAZOLE SODIUM [Concomitant]
  8. SALMETEROL / FLUTICASONE PROPIONATE 50/250(INHALANT) [Concomitant]
  9. TIOTROPIUM BROMIDE( INHALANT) [Concomitant]

REACTIONS (6)
  - ABDOMINAL PAIN LOWER [None]
  - DIAPHRAGMATIC HERNIA [None]
  - DIVERTICULUM [None]
  - INAPPROPRIATE ANTIDIURETIC HORMONE SECRETION [None]
  - MALAISE [None]
  - WEIGHT DECREASED [None]
